FAERS Safety Report 9757440 (Version 1)
Quarter: 2013Q4

REPORT INFORMATION
  Report Type: Spontaneous
  Country: US (occurrence: US)
  Receive Date: 20131215
  Receipt Date: 20131215
  Transmission Date: 20140711
  Serious: No
  Sender: FDA-Public Use
  Company Number: US-009507513-1312USA002955

PATIENT
  Age: 65 Year
  Sex: Female

DRUGS (1)
  1. DULERA [Suspect]
     Indication: SMOKE SENSITIVITY
     Route: 055

REACTIONS (1)
  - Palpitations [Unknown]
